FAERS Safety Report 12631257 (Version 2)
Quarter: 2016Q3

REPORT INFORMATION
  Report Type: Spontaneous
  Country: US (occurrence: US)
  Receive Date: 20160808
  Receipt Date: 20160808
  Transmission Date: 20161109
  Serious: No
  Sender: FDA-Public Use
  Company Number: US-BEH-2015053087

PATIENT
  Sex: Male
  Weight: 82.6 kg

DRUGS (10)
  1. DEXAMETHASONE. [Concomitant]
     Active Substance: DEXAMETHASONE
  2. VENTOLIN [Concomitant]
     Active Substance: ALBUTEROL SULFATE
  3. COENZYME Q10 [Concomitant]
     Active Substance: UBIDECARENONE
  4. HIZENTRA [Suspect]
     Active Substance: HUMAN IMMUNOGLOBULIN G
     Indication: BRONCHIECTASIS
     Dosage: 10 GM 50 ML VIAL
     Route: 058
  5. ERYTHROMYCIN. [Concomitant]
     Active Substance: ERYTHROMYCIN
  6. SYMBICORT [Concomitant]
     Active Substance: BUDESONIDE\FORMOTEROL FUMARATE DIHYDRATE
  7. ASPIRIN. [Concomitant]
     Active Substance: ASPIRIN
  8. HIZENTRA [Suspect]
     Active Substance: HUMAN IMMUNOGLOBULIN G
     Indication: BRONCHIECTASIS
     Dosage: 10 GM 50 ML VIAL
     Route: 058
  9. LIPITOR [Concomitant]
     Active Substance: ATORVASTATIN CALCIUM
  10. DULCOLAX NOS [Concomitant]
     Active Substance: BISACODYL OR DOCUSATE SODIUM

REACTIONS (1)
  - Administration site swelling [Unknown]
